FAERS Safety Report 9254289 (Version 1)
Quarter: 2013Q2

REPORT INFORMATION
  Report Type: Spontaneous
  Country: US (occurrence: None)
  Receive Date: 20130422
  Receipt Date: 20130422
  Transmission Date: 20140414
  Serious: Yes (Other)
  Sender: FDA-Public Use
  Company Number: None

PATIENT
  Sex: Male
  Weight: 106.8 kg

DRUGS (1)
  1. VICTRELIS [Suspect]
     Indication: CHRONIC HEPATITIS C
     Dosage: 200MG-TAKES 4 CAPSULES Q 8 HRS
     Route: 048
     Dates: start: 20130416

REACTIONS (2)
  - Dysphagia [None]
  - Swollen tongue [None]
